FAERS Safety Report 16334079 (Version 1)
Quarter: 2019Q2

REPORT INFORMATION
  Report Type: Report from Study
  Country: US (occurrence: US)
  Receive Date: 20190520
  Receipt Date: 20190520
  Transmission Date: 20190711
  Serious: Yes (Hospitalization, Other)
  Sender: FDA-Public Use
  Company Number: US-GILEAD-2019-0408672

PATIENT
  Age: 65 Year
  Sex: Male

DRUGS (11)
  1. ADEMPAS [Concomitant]
     Active Substance: RIOCIGUAT
  2. SHINGRIX [Concomitant]
     Active Substance: RECOMBINANT VARICELLA ZOSTER VIRUS (VZV) GLYCOPROTEIN E
  3. CALCIUM [Concomitant]
     Active Substance: CALCIUM
  4. MICRO K [Concomitant]
  5. AMBRISENTAN [Suspect]
     Active Substance: AMBRISENTAN
     Indication: PULMONARY HYPERTENSION
     Dosage: 10 MG, QD
     Route: 065
     Dates: start: 20160510
  6. ALLOPURINOL. [Concomitant]
     Active Substance: ALLOPURINOL
  7. CALCIUM ACETATE. [Concomitant]
     Active Substance: CALCIUM ACETATE
  8. BUMETANIDE. [Concomitant]
     Active Substance: BUMETANIDE
  9. FOLIC ACID. [Concomitant]
     Active Substance: FOLIC ACID
  10. POTASSIUM [Concomitant]
     Active Substance: POTASSIUM
  11. WARFARIN [Concomitant]
     Active Substance: WARFARIN

REACTIONS (2)
  - Intentional dose omission [Not Recovered/Not Resolved]
  - Pulmonary arterial hypertension [Unknown]
